FAERS Safety Report 8182087-6 (Version None)
Quarter: 2012Q1

REPORT INFORMATION
  Report Type: 
  Country: None (occurrence: None)
  Receive Date: 20120302
  Receipt Date: 20120223
  Transmission Date: 20120608
  Serious: Yes (Life-Threatening, Hospitalization)
  Sender: FDA-Public Use
  Company Number: PHFR2011GB03077

PATIENT
  Sex: Male

DRUGS (2)
  1. PANTOPRAZOLE [Concomitant]
     Dosage: 40 MG, BID
     Route: 048
  2. CLOZARIL [Suspect]
     Indication: SCHIZOPHRENIA
     Dosage: 350 MG, DAILY
     Route: 048
     Dates: start: 20030701

REACTIONS (5)
  - SCHIZOPHRENIA [None]
  - CONDITION AGGRAVATED [None]
  - VOMITING [None]
  - STRESS [None]
  - DUODENAL ULCER [None]
